FAERS Safety Report 10868065 (Version 3)
Quarter: 2015Q2

REPORT INFORMATION
  Report Type: Report from Study
  Country: US (occurrence: US)
  Receive Date: 20150225
  Receipt Date: 20150508
  Transmission Date: 20150821
  Serious: Yes (Other)
  Sender: FDA-Public Use
  Company Number: PHEH2015US003501

PATIENT
  Sex: Male

DRUGS (1)
  1. TEGRETOL [Suspect]
     Active Substance: CARBAMAZEPINE
     Indication: PRODUCT USED FOR UNKNOWN INDICATION
     Dosage: 200 MG, (2 IN THE AM, 2 IN THE PM, 3 IN THE EVENING)
     Route: 048

REACTIONS (8)
  - Malaise [Unknown]
  - Amnesia [Unknown]
  - Limb discomfort [Unknown]
  - Stress [Unknown]
  - Generalised tonic-clonic seizure [Unknown]
  - Intervertebral disc protrusion [Unknown]
  - Aneurysm [Unknown]
  - Seizure [Unknown]
